FAERS Safety Report 16601000 (Version 10)
Quarter: 2020Q2

REPORT INFORMATION
  Report Type: Report from Study
  Country: KR (occurrence: KR)
  Receive Date: 20190719
  Receipt Date: 20200526
  Transmission Date: 20200713
  Serious: Yes (Death)
  Sender: FDA-Public Use
  Company Number: KR-EISAI MEDICAL RESEARCH-EC-2019-059365

PATIENT
  Age: 57 Year
  Sex: Male
  Weight: 52.3 kg

DRUGS (29)
  1. FEROBA U [Concomitant]
     Active Substance: FERROUS SULFATE
     Dates: start: 20190503
  2. BLOOD PLASMA [Concomitant]
     Active Substance: HUMAN PLASMA
     Dates: start: 20190716, end: 20190716
  3. CRAVIT [Concomitant]
     Active Substance: LEVOFLOXACIN
     Dates: start: 20190324
  4. SYNTHROID [Concomitant]
     Active Substance: LEVOTHYROXINE SODIUM
     Dates: start: 20190503, end: 20190708
  5. LASIX [Concomitant]
     Active Substance: FUROSEMIDE
     Dates: start: 20190325
  6. MACPERAN [Concomitant]
     Active Substance: METOCLOPRAMIDE HYDROCHLORIDE
     Dates: start: 20190510
  7. ATROPINE. [Concomitant]
     Active Substance: ATROPINE
     Dates: start: 20190716, end: 20190716
  8. FREAMINE III NOS [Concomitant]
     Active Substance: AMINO ACIDS
     Dates: start: 20190708, end: 20190708
  9. IRCODON [Concomitant]
     Active Substance: OXYCODONE HYDROCHLORIDE
     Dates: start: 20190510
  10. TANTUM [Concomitant]
     Active Substance: BENZYDAMINE HYDROCHLORIDE
     Dates: start: 20190326
  11. SODIUM BICARBONATE. [Concomitant]
     Active Substance: SODIUM BICARBONATE
     Dates: start: 20190326
  12. LENVATINIB [Suspect]
     Active Substance: LENVATINIB
     Route: 048
     Dates: start: 20190529, end: 20190616
  13. PEMBROLIZUMAB. [Suspect]
     Active Substance: PEMBROLIZUMAB
     Indication: GASTRIC CANCER
     Route: 041
     Dates: start: 20190416, end: 20190617
  14. ALDACTONE [Concomitant]
     Active Substance: SPIRONOLACTONE
     Dates: start: 20190325
  15. LOTEMAX [Concomitant]
     Active Substance: LOTEPREDNOL ETABONATE
     Dates: start: 20190324
  16. RETENS [Concomitant]
     Dates: start: 20190324
  17. LENVATINIB [Suspect]
     Active Substance: LENVATINIB
     Indication: GASTRIC CANCER
     Route: 048
     Dates: start: 20190416, end: 20190425
  18. BEECOM HEXA [Concomitant]
     Dates: start: 20190429
  19. HYSONE [Concomitant]
     Dates: start: 20190708
  20. TANAMIN [Concomitant]
     Dates: start: 20190324
  21. BETOPTIC S [Concomitant]
     Active Substance: BETAXOLOL HYDROCHLORIDE
     Dates: start: 20190324
  22. LENVATINIB [Suspect]
     Active Substance: LENVATINIB
     Route: 048
     Dates: start: 20190509, end: 20190519
  23. LENVATINIB [Suspect]
     Active Substance: LENVATINIB
     Route: 048
     Dates: start: 20190625, end: 20190713
  24. URSA [Concomitant]
     Active Substance: URSODIOL
     Dates: start: 20190501
  25. LIPOSIC [Concomitant]
     Active Substance: CARBOMER
     Dates: start: 20190314
  26. PEMBROLIZUMAB. [Suspect]
     Active Substance: PEMBROLIZUMAB
     Route: 041
     Dates: start: 20190708, end: 20190708
  27. SYNTHROID [Concomitant]
     Active Substance: LEVOTHYROXINE SODIUM
     Dates: start: 20190709
  28. NORZYME [Concomitant]
     Dates: start: 20190508
  29. KYNEX [Concomitant]
     Active Substance: SULFAMETHOXYPYRIDAZINE
     Dates: start: 20190413

REACTIONS (1)
  - Haemorrhage [Fatal]

NARRATIVE: CASE EVENT DATE: 20190716
